FAERS Safety Report 9735739 (Version 1)
Quarter: 2013Q4

REPORT INFORMATION
  Report Type: Spontaneous
  Country: US (occurrence: US)
  Receive Date: 20131206
  Receipt Date: 20131206
  Transmission Date: 20140711
  Serious: Yes (Hospitalization)
  Sender: FDA-Public Use
  Company Number: US-B.I. PHARMACEUTICALS,INC./RIDGEFIELD-2013-BI-40215BP

PATIENT
  Age: 86 Year
  Sex: Female
  Weight: 82 kg

DRUGS (12)
  1. PRADAXA [Suspect]
     Indication: CEREBROVASCULAR ACCIDENT PROPHYLAXIS
     Dosage: 150 MG
     Route: 048
     Dates: start: 2011, end: 20130911
  2. PRADAXA [Suspect]
     Indication: ATRIAL FIBRILLATION
  3. POTASSIUM CHLORIDE [Concomitant]
     Indication: BLOOD POTASSIUM DECREASED
     Route: 048
  4. GLUCOSAMINE CHONDROITIN [Concomitant]
     Route: 048
  5. NOVOLOG [Concomitant]
     Indication: DIABETES MELLITUS
     Route: 058
  6. NOVOLOG [Concomitant]
     Route: 058
  7. LANTUS [Concomitant]
     Indication: DIABETES MELLITUS
     Route: 058
  8. METOPROLOL [Concomitant]
     Dosage: 25 MG
     Route: 048
  9. LASIX [Concomitant]
     Indication: LOCAL SWELLING
     Route: 048
  10. LOVASTATIN [Concomitant]
     Indication: BLOOD CHOLESTEROL INCREASED
     Dosage: 10 MG
     Route: 048
  11. TRIBENZOR [Concomitant]
     Indication: HYPERTENSION
     Dosage: 40MG/5MG/25MG; DAILY DOSE: 40MG/5MG/25MG
     Route: 048
  12. CENTRUM SILVER [Concomitant]
     Route: 048

REACTIONS (3)
  - Atrial fibrillation [Recovered/Resolved]
  - Petechiae [Recovered/Resolved]
  - Atrial fibrillation [Recovered/Resolved]
